FAERS Safety Report 22976569 (Version 4)
Quarter: 2024Q1

REPORT INFORMATION
  Report Type: Spontaneous
  Country: US (occurrence: US)
  Receive Date: 20230925
  Receipt Date: 20240305
  Transmission Date: 20240410
  Serious: No
  Sender: FDA-Public Use
  Company Number: US-BIOGEN-2023BI01226825

PATIENT
  Sex: Female

DRUGS (1)
  1. SPINRAZA [Suspect]
     Active Substance: NUSINERSEN
     Indication: Product used for unknown indication
     Route: 050

REACTIONS (4)
  - Spinal muscular atrophy [Unknown]
  - Hyperaesthesia [Unknown]
  - Atrophy [Unknown]
  - Stenosis [Unknown]

NARRATIVE: CASE EVENT DATE: 20230101
